FAERS Safety Report 23429742 (Version 1)
Quarter: 2024Q1

REPORT INFORMATION
  Report Type: Spontaneous
  Country: US (occurrence: US)
  Receive Date: 20240122
  Receipt Date: 20240122
  Transmission Date: 20240409
  Serious: No
  Sender: FDA-Public Use
  Company Number: US-Covis Pharma GmbH-2024COV00051

PATIENT
  Age: 73 Year
  Sex: Female

DRUGS (1)
  1. ALTOPREV [Suspect]
     Active Substance: LOVASTATIN
     Route: 048

REACTIONS (1)
  - Drug ineffective [Unknown]
